FAERS Safety Report 6223447-X (Version None)
Quarter: 2009Q2

REPORT INFORMATION
  Report Type: 
  Country: None (occurrence: None)
  Receive Date: 20090609
  Receipt Date: 20090605
  Transmission Date: 20091009
  Serious: Yes (Hospitalization)
  Sender: FDA-Public Use
  Company Number: GXKR2009DE06549

PATIENT
  Age: 79 Year
  Sex: Female
  Weight: 90 kg

DRUGS (5)
  1. QUINAPRIL+HYDROCHLOROTHIAZIDE (NGX) (HYDROCHLOROTHIAZIDE, QUINAPRIL) U [Suspect]
     Indication: HYPERTENSION
     Dosage: 1 DF, QD, ORAL
     Route: 048
     Dates: start: 20080101, end: 20090512
  2. INSULIN BASAL (INSULIN ISOPHANE HUMAN SEMISYNTHETIC) [Concomitant]
  3. INSULIN RAPID ^PARANOVA^ (INSULIN) [Concomitant]
  4. METFORMIN HCL [Concomitant]
  5. PANTOPRAZOLE SODIUM [Concomitant]

REACTIONS (1)
  - PALPITATIONS [None]
